FAERS Safety Report 16946296 (Version 1)
Quarter: 2019Q4

REPORT INFORMATION
  Report Type: Spontaneous
  Country: US (occurrence: US)
  Receive Date: 20190830
  Receipt Date: 20190830
  Transmission Date: 20200122
  Serious: Yes (Hospitalization)
  Sender: FDA-Public Use
  Company Number: None

PATIENT
  Age: 44 Year
  Sex: Female
  Weight: 97.1 kg

DRUGS (1)
  1. ASPIRIN. [Suspect]
     Active Substance: ASPIRIN
     Dates: start: 20190820

REACTIONS (11)
  - Compression fracture [None]
  - Haematocrit decreased [None]
  - Back pain [None]
  - Haemoglobin decreased [None]
  - Pleural effusion [None]
  - Seroma [None]
  - Pneumonia [None]
  - Metastases to lung [None]
  - White blood cell count decreased [None]
  - Platelet count decreased [None]
  - Tachycardia [None]

NARRATIVE: CASE EVENT DATE: 20190820
